FAERS Safety Report 26193023 (Version 1)
Quarter: 2025Q4

REPORT INFORMATION
  Report Type: Spontaneous
  Country: EU (occurrence: EU)
  Receive Date: 20251223
  Receipt Date: 20251223
  Transmission Date: 20260117
  Serious: Yes (Life-Threatening, Hospitalization, Other)
  Sender: BRISTOL-MYERS SQUIBB COMPANY
  Company Number: None

PATIENT
  Age: 52 Year
  Sex: Female
  Weight: 60 kg

DRUGS (3)
  1. LENALIDOMIDE [Suspect]
     Active Substance: LENALIDOMIDE
     Indication: Plasma cell myeloma
     Dosage: 1 X PER DAY
     Route: 048
     Dates: start: 20251001, end: 20251101
  2. BORTEZOMIB [Suspect]
     Active Substance: BORTEZOMIB
     Indication: Plasma cell myeloma
     Dosage: PER DARA-VRD (DARATUMUMAB + BORTEZOMIB + LENALIDOMIDE + DEXAMETHASONE) TREATMENT FOR MULTIPLE MYELOMA. DOSE DECREASED ON 20-OCT-2025
  3. PREDNISONE [Concomitant]
     Active Substance: PREDNISONE
     Indication: Product used for unknown indication

REACTIONS (1)
  - Ileus paralytic [Recovering/Resolving]
